FAERS Safety Report 17458066 (Version 2)
Quarter: 2020Q3

REPORT INFORMATION
  Report Type: Report from Study
  Country: GB (occurrence: GB)
  Receive Date: 20200225
  Receipt Date: 20200918
  Transmission Date: 20201102
  Serious: Yes (Other)
  Sender: FDA-Public Use
  Company Number: GB-UCBSA-2019043978

PATIENT
  Age: 49 Year
  Sex: Female

DRUGS (4)
  1. BRIVARACETAM [Suspect]
     Active Substance: BRIVARACETAM
     Dosage: 50 MILLIGRAM, 2X/DAY (BID)
     Route: 048
  2. LAMOTRIGINE. [Concomitant]
     Active Substance: LAMOTRIGINE
     Indication: EPILEPSY
     Dosage: 250 MILLIGRAM, 2X/DAY (BID)
     Route: 048
     Dates: start: 201109
  3. BRIVARACETAM [Suspect]
     Active Substance: BRIVARACETAM
     Indication: EPILEPSY
     Dosage: UNK
     Dates: start: 20190131
  4. BRIVARACETAM [Suspect]
     Active Substance: BRIVARACETAM
     Dosage: 75 MILLIGRAM, 2X/DAY (BID)
     Route: 048
     Dates: end: 20190718

REACTIONS (11)
  - Irritability [Not Recovered/Not Resolved]
  - Skin discolouration [Not Recovered/Not Resolved]
  - Anger [Recovered/Resolved]
  - Migraine [Not Recovered/Not Resolved]
  - Fall [Unknown]
  - Gastrooesophageal reflux disease [Not Recovered/Not Resolved]
  - Limb injury [Recovered/Resolved]
  - Cataract [Not Recovered/Not Resolved]
  - Impatience [Recovered/Resolved]
  - Fatigue [Not Recovered/Not Resolved]
  - Sleep disorder [Not Recovered/Not Resolved]

NARRATIVE: CASE EVENT DATE: 2019
